FAERS Safety Report 19207154 (Version 1)
Quarter: 2021Q2

REPORT INFORMATION
  Report Type: Spontaneous
  Country: CA (occurrence: CA)
  Receive Date: 20210430
  Receipt Date: 20210430
  Transmission Date: 20210717
  Serious: Yes (Other)
  Sender: FDA-Public Use
  Company Number: CA-APC-202100125

PATIENT
  Age: 14 Year
  Sex: Male

DRUGS (15)
  1. NUTROPIN [Suspect]
     Active Substance: SOMATROPIN
     Route: 058
  2. ENALAPRIL MALEATE. [Suspect]
     Active Substance: ENALAPRIL MALEATE
     Route: 065
  3. METFORMIN [Suspect]
     Active Substance: METFORMIN HYDROCHLORIDE
     Route: 065
  4. FERROUS FUMARATE [Suspect]
     Active Substance: FERROUS FUMARATE
     Route: 065
  5. SULFAMETHOXAZOLE [Suspect]
     Active Substance: SULFAMETHOXAZOLE
     Route: 065
  6. METHOTREXATE. [Suspect]
     Active Substance: METHOTREXATE
     Route: 065
  7. INFLIXIMAB [Suspect]
     Active Substance: INFLIXIMAB
     Route: 065
  8. PREDNISONE. [Suspect]
     Active Substance: PREDNISONE
     Route: 065
  9. CYCLOPHOSPHAMIDE. [Suspect]
     Active Substance: CYCLOPHOSPHAMIDE
     Route: 065
  10. AZATHIOPRINE. [Suspect]
     Active Substance: AZATHIOPRINE
     Route: 065
  11. AMLODIPINE [Suspect]
     Active Substance: AMLODIPINE BESYLATE
     Route: 065
  12. RANITIDINE. [Suspect]
     Active Substance: RANITIDINE
     Route: 065
  13. TESTOSTERONE. [Suspect]
     Active Substance: TESTOSTERONE
     Indication: PRODUCT USED FOR UNKNOWN INDICATION
     Route: 065
  14. SOMATREM [Suspect]
     Active Substance: SOMATREM
     Route: 065
  15. INSULIN HUMAN [Suspect]
     Active Substance: INSULIN HUMAN
     Route: 065

REACTIONS (5)
  - Lymphoproliferative disorder [Unknown]
  - Clear cell renal cell carcinoma [Unknown]
  - Product use in unapproved indication [Unknown]
  - Off label use [Unknown]
  - Renal cell carcinoma [Unknown]
